APPROVED DRUG PRODUCT: AMOXICILLIN PEDIATRIC
Active Ingredient: AMOXICILLIN
Strength: 50MG/ML
Dosage Form/Route: FOR SUSPENSION;ORAL
Application: A061931 | Product #003 | TE Code: AB
Applicant: TEVA PHARMACEUTICALS USA INC
Approved: Dec 1, 1982 | RLD: No | RS: No | Type: RX